FAERS Safety Report 9657709 (Version 3)
Quarter: 2013Q4

REPORT INFORMATION
  Report Type: Spontaneous
  Country: JP (occurrence: JP)
  Receive Date: 20131030
  Receipt Date: 20131101
  Transmission Date: 20140711
  Serious: Yes (Death)
  Sender: FDA-Public Use
  Company Number: JP-ASTRAZENECA-2013SE71340

PATIENT
  Age: 66 Year
  Sex: Female

DRUGS (1)
  1. DIPRIVAN [Suspect]
     Indication: SEDATION
     Dosage: DOSE UNKNOWN
     Route: 042
     Dates: start: 20130918

REACTIONS (2)
  - Pharyngeal cancer [Fatal]
  - Chromaturia [Recovered/Resolved]
